FAERS Safety Report 24311165 (Version 1)
Quarter: 2024Q3

REPORT INFORMATION
  Report Type: Spontaneous
  Country: US (occurrence: US)
  Receive Date: 20240912
  Receipt Date: 20240912
  Transmission Date: 20241017
  Serious: No
  Sender: PAREXEL
  Company Number: US-NOVEN PHARMACEUTICALS, INC.-2023-NOV-US000887

PATIENT
  Age: 60 Year
  Sex: Female

DRUGS (3)
  1. COMBIPATCH [Suspect]
     Active Substance: ESTRADIOL\NORETHINDRONE ACETATE
     Indication: Bone loss
     Dosage: 0.05/0.14 MG, HALF PATCH FOR 2 WEEKS
     Route: 062
  2. COMBIPATCH [Suspect]
     Active Substance: ESTRADIOL\NORETHINDRONE ACETATE
     Indication: Off label use
     Dosage: 0.05/0.14 MG, 1 PATCH FOR 2 WEEKS
     Route: 062
     Dates: start: 202307
  3. TIROSINT [Concomitant]
     Active Substance: LEVOTHYROXINE SODIUM
     Indication: Autoimmune thyroiditis
     Dosage: UNK, UNKNOWN
     Route: 065

REACTIONS (5)
  - Blood oestrogen increased [Recovered/Resolved]
  - Progesterone abnormal [Unknown]
  - Blood oestrogen decreased [Unknown]
  - Postmenopausal haemorrhage [Not Recovered/Not Resolved]
  - Off label use [Not Recovered/Not Resolved]

NARRATIVE: CASE EVENT DATE: 20230101
